FAERS Safety Report 4504575-3 (Version None)
Quarter: 2004Q4

REPORT INFORMATION
  Report Type: 
  Country: None (occurrence: None)
  Receive Date: 20041116
  Receipt Date: 20041104
  Transmission Date: 20050328
  Serious: Yes (Other)
  Sender: FDA-Public Use
  Company Number: 2004082110

PATIENT
  Age: 85 Year
  Sex: Female

DRUGS (7)
  1. CADUET [Suspect]
     Indication: HYPERLIPIDAEMIA
     Dosage: 5/10 (1 IN 1 D)
     Dates: start: 20040501, end: 20040917
  2. CADUET [Suspect]
     Indication: HYPERTENSION
     Dosage: 5/10 (1 IN 1 D)
     Dates: start: 20040501, end: 20040917
  3. ESCITALOPRAM (ESCITALOPRAM) [Concomitant]
  4. CLOPIDOGREL BISULFATE [Concomitant]
  5. LEVOTHYROXINE SODIUM [Concomitant]
  6. ASPIRIN [Concomitant]
  7. PROMETHAZINE HYDROCHLORIDE TAB [Concomitant]

REACTIONS (10)
  - ABDOMINAL MASS [None]
  - ALANINE AMINOTRANSFERASE INCREASED [None]
  - ASPARTATE AMINOTRANSFERASE INCREASED [None]
  - BLOOD ALKALINE PHOSPHATASE INCREASED [None]
  - DIARRHOEA [None]
  - DRUG TOXICITY [None]
  - GALLBLADDER DISORDER [None]
  - GLUCOSE URINE PRESENT [None]
  - PANCREATITIS ACUTE [None]
  - URINE LEUKOCYTE ESTERASE POSITIVE [None]
